FAERS Safety Report 6277326-2 (Version None)
Quarter: 2009Q3

REPORT INFORMATION
  Report Type: 
  Country: None (occurrence: None)
  Receive Date: 20090722
  Receipt Date: 20090407
  Transmission Date: 20100115
  Serious: Yes (Hospitalization)
  Sender: FDA-Public Use
  Company Number: US-BRISTOL-MYERS SQUIBB COMPANY-14578348

PATIENT
  Sex: Male

DRUGS (2)
  1. COUMADIN [Suspect]
     Indication: DEEP VEIN THROMBOSIS
  2. COUMADIN [Suspect]
     Indication: EMBOLISM

REACTIONS (3)
  - BLOOD URINE PRESENT [None]
  - DRUG INEFFECTIVE [None]
  - OEDEMA PERIPHERAL [None]
